FAERS Safety Report 19670646 (Version 1)
Quarter: 2021Q3

REPORT INFORMATION
  Report Type: Report from Study
  Country: PK (occurrence: PK)
  Receive Date: 20210806
  Receipt Date: 20210806
  Transmission Date: 20211014
  Serious: Yes (Death, Hospitalization)
  Sender: FDA-Public Use
  Company Number: NVSC2021PK177749

PATIENT
  Sex: Female
  Weight: 84 kg

DRUGS (1)
  1. KISQALI [Suspect]
     Active Substance: RIBOCICLIB
     Indication: BREAST CANCER
     Dosage: 200 MG, TID
     Route: 048
     Dates: start: 20181221, end: 20190523

REACTIONS (3)
  - Vomiting [Fatal]
  - Inappropriate schedule of product administration [Unknown]
  - Hepatic cirrhosis [Fatal]
